FAERS Safety Report 7399826-4 (Version None)
Quarter: 2011Q2

REPORT INFORMATION
  Report Type: 
  Country: None (occurrence: None)
  Receive Date: 20110407
  Receipt Date: 20110323
  Transmission Date: 20111010
  Serious: Yes (Hospitalization, Other)
  Sender: FDA-Public Use
  Company Number: US-JNJFOC-20110302109

PATIENT

DRUGS (5)
  1. REMICADE [Suspect]
     Indication: RHEUMATOID ARTHRITIS
     Route: 042
  2. REMICADE [Suspect]
     Route: 042
  3. METHOTREXATE [Concomitant]
     Indication: RHEUMATOID ARTHRITIS
  4. PREMARIN [Concomitant]
     Indication: POSTMENOPAUSE
  5. DITROPAN [Concomitant]
     Indication: INCONTINENCE

REACTIONS (2)
  - RENAL FAILURE ACUTE [None]
  - URINARY TRACT INFECTION [None]
